FAERS Safety Report 4675729-0 (Version None)
Quarter: 2005Q2

REPORT INFORMATION
  Report Type: 
  Country: None (occurrence: None)
  Receive Date: 20050527
  Receipt Date: 20050224
  Transmission Date: 20051028
  Serious: Yes (Life-Threatening)
  Sender: FDA-Public Use
  Company Number: US-BRISTOL-MYERS SQUIBB COMPANY-12883039

PATIENT
  Age: 53 Year
  Sex: Male

DRUGS (2)
  1. ERBITUX [Suspect]
     Indication: COLORECTAL CANCER
     Dosage: PATIENT WAS TO RECEIVE 400 MG/M2 BUT ONLY RECEIVED 14 CC OF INFUSION (APPROXIMATELY 23.4 MG).
     Route: 042
     Dates: start: 20050210, end: 20050210
  2. BENADRYL [Concomitant]
     Indication: PREMEDICATION
     Route: 042
     Dates: start: 20050210

REACTIONS (1)
  - INFUSION RELATED REACTION [None]
